FAERS Safety Report 4982266-2 (Version None)
Quarter: 2006Q2

REPORT INFORMATION
  Report Type: 
  Country: None (occurrence: None)
  Receive Date: 20060419
  Receipt Date: 20060406
  Transmission Date: 20061013
  Serious: Yes (Other)
  Sender: FDA-Public Use
  Company Number: 2006023779

PATIENT
  Age: 71 Year
  Sex: Male

DRUGS (6)
  1. VIAGRA [Suspect]
     Indication: ILL-DEFINED DISORDER
     Dosage: 100 MG (100 MG, 1 IN 1 D), ORAL
     Route: 048
     Dates: start: 19980429
  2. VITAMIN B COMPLEX CAP [Concomitant]
  3. ANTIHYPERTENSIVES [Concomitant]
  4. LAXATIVES [Concomitant]
  5. STOOL SOFTENER (DOCUSATE SODIUM) [Concomitant]
  6. ANTI-DIABETICS [Concomitant]

REACTIONS (13)
  - BLINDNESS [None]
  - CATARACT [None]
  - EJACULATION FAILURE [None]
  - EYE HAEMORRHAGE [None]
  - MICROANGIOPATHY [None]
  - NOCTURIA [None]
  - OPTIC ATROPHY [None]
  - OPTIC ISCHAEMIC NEUROPATHY [None]
  - PAPILLOEDEMA [None]
  - PARKINSON'S DISEASE [None]
  - PROSTATE EXAMINATION ABNORMAL [None]
  - SCOTOMA [None]
  - TESTICULAR PAIN [None]
